FAERS Safety Report 9952993 (Version 2)
Quarter: 2014Q2

REPORT INFORMATION
  Report Type: Spontaneous
  Country: US (occurrence: US)
  Receive Date: 20140304
  Receipt Date: 20140515
  Transmission Date: 20141212
  Serious: Yes (Hospitalization)
  Sender: FDA-Public Use
  Company Number: US-GILEAD-2014-0095813

PATIENT
  Sex: Female

DRUGS (16)
  1. LETAIRIS [Suspect]
     Indication: PULMONARY ARTERIAL HYPERTENSION
     Dosage: 10 MG, QD
     Route: 065
     Dates: start: 20140129
  2. LETAIRIS [Suspect]
     Indication: SCLERODERMA
  3. ACYCLOVIR                          /00587301/ [Concomitant]
  4. ADVAIR [Concomitant]
  5. ALBUTEROL                          /00139501/ [Concomitant]
  6. DOCUSATE [Concomitant]
  7. FERROUS SULFATE [Concomitant]
  8. HYDROCHLOROTHIAZIDE [Concomitant]
  9. HYDROXYCHLOROQUINE [Concomitant]
  10. MONTELUKAST [Concomitant]
  11. PREDNISONE [Concomitant]
  12. RANITIDINE [Concomitant]
  13. ZOLOFT [Concomitant]
  14. POTASSIUM [Concomitant]
  15. TRAMADOL [Concomitant]
  16. CLOZAPINE [Concomitant]

REACTIONS (2)
  - Blood potassium decreased [Not Recovered/Not Resolved]
  - Dyspnoea [Not Recovered/Not Resolved]
